FAERS Safety Report 6301761-7 (Version None)
Quarter: 2009Q3

REPORT INFORMATION
  Report Type: 
  Country: None (occurrence: None)
  Receive Date: 20090807
  Receipt Date: 20090805
  Transmission Date: 20100115
  Serious: Yes (Hospitalization)
  Sender: FDA-Public Use
  Company Number: AU-BRISTOL-MYERS SQUIBB COMPANY-14729099

PATIENT
  Age: 75 Year
  Sex: Female

DRUGS (7)
  1. IRBESARTAN [Suspect]
  2. SOTALOL HCL [Suspect]
  3. ATORVASTATIN [Concomitant]
  4. ESOMEPRAZOLE MAGNESIUM TRIHYDRATE [Concomitant]
  5. FRUSEMIDE [Concomitant]
  6. SPIRONOLACTONE [Concomitant]
  7. WARFARIN SODIUM [Concomitant]

REACTIONS (6)
  - ABDOMINAL PAIN [None]
  - BACK PAIN [None]
  - BRADYCARDIA [None]
  - CHEST PAIN [None]
  - DYSPNOEA [None]
  - NAUSEA [None]
